FAERS Safety Report 19464254 (Version 2)
Quarter: 2021Q2

REPORT INFORMATION
  Report Type: Spontaneous
  Country: US (occurrence: US)
  Receive Date: 20210626
  Receipt Date: 20210626
  Transmission Date: 20210717
  Serious: No
  Sender: FDA-Public Use
  Company Number: US-DSJP-DSU-2021-119113

PATIENT
  Sex: Female

DRUGS (1)
  1. ENHERTU [Suspect]
     Active Substance: FAM-TRASTUZUMAB DERUXTECAN-NXKI
     Indication: BREAST CANCER METASTATIC
     Dosage: UNK
     Route: 042

REACTIONS (9)
  - Alopecia [Unknown]
  - Weight decreased [Unknown]
  - Decreased appetite [Unknown]
  - Abdominal pain [Unknown]
  - Dyspnoea [Unknown]
  - Asthenia [Unknown]
  - Impaired quality of life [Unknown]
  - Constipation [Unknown]
  - Fatigue [Unknown]
